FAERS Safety Report 6639736-0 (Version None)
Quarter: 2010Q1

REPORT INFORMATION
  Report Type: 
  Country: None (occurrence: None)
  Receive Date: 20100318
  Receipt Date: 20100308
  Transmission Date: 20100710
  Serious: Yes (Hospitalization)
  Sender: FDA-Public Use
  Company Number: PHHY2010JP10475

PATIENT
  Age: 48 Year
  Sex: Female

DRUGS (5)
  1. TEGRETOL [Suspect]
     Indication: PAIN IN EXTREMITY
     Dosage: 200 MG DAILY
     Route: 048
     Dates: start: 20100114, end: 20100217
  2. WARFARIN SODIUM [Interacting]
     Dosage: 3.35 MG DAILY
     Route: 048
     Dates: end: 20100209
  3. WARFARIN SODIUM [Interacting]
     Dosage: 4 MG DAILY
     Route: 048
     Dates: start: 20100210, end: 20100221
  4. WARFARIN SODIUM [Interacting]
     Dosage: 5 MG DAILY
     Route: 048
     Dates: start: 20100222, end: 20100224
  5. WARFARIN SODIUM [Interacting]
     Dosage: 7 MG DAILY
     Route: 048
     Dates: start: 20100225

REACTIONS (3)
  - COAGULATION TIME SHORTENED [None]
  - DRUG INTERACTION [None]
  - INTERNATIONAL NORMALISED RATIO DECREASED [None]
